FAERS Safety Report 12464415 (Version 1)
Quarter: 2016Q2

REPORT INFORMATION
  Report Type: Spontaneous
  Country: US (occurrence: None)
  Receive Date: 20160613
  Receipt Date: 20160613
  Transmission Date: 20160815
  Serious: Yes (Death)
  Sender: FDA-Public Use
  Company Number: None

PATIENT
  Age: 57 Year
  Sex: Male
  Weight: 70 kg

DRUGS (2)
  1. SOFOSBUVIR [Suspect]
     Active Substance: SOFOSBUVIR
     Indication: HEPATITIS C
     Route: 048
     Dates: start: 20151011, end: 20151128
  2. RIBAVIRIN. [Suspect]
     Active Substance: RIBAVIRIN
     Indication: HEPATITIS C
     Dosage: MG PO
     Route: 048
     Dates: start: 20151011, end: 20151128

REACTIONS (9)
  - Shock haemorrhagic [None]
  - Cardio-respiratory arrest [None]
  - Upper gastrointestinal haemorrhage [None]
  - Varices oesophageal [None]
  - Transfusion related complication [None]
  - Nosocomial infection [None]
  - Haemodialysis [None]
  - Hyperammonaemia [None]
  - Acute kidney injury [None]

NARRATIVE: CASE EVENT DATE: 20151128
